FAERS Safety Report 10170544 (Version 2)
Quarter: 2014Q2

REPORT INFORMATION
  Report Type: Report from Study
  Country: US (occurrence: US)
  Receive Date: 20140513
  Receipt Date: 20140521
  Transmission Date: 20141212
  Serious: Yes (Hospitalization)
  Sender: FDA-Public Use
  Company Number: US-ONYX-2014-0995

PATIENT
  Age: 58 Year
  Sex: Female
  Weight: 63.1 kg

DRUGS (5)
  1. CARFILZOMIB [Suspect]
     Indication: PLASMA CELL MYELOMA
     Route: 042
     Dates: start: 20140114
  2. LENALIDOMIDE [Concomitant]
     Indication: PLASMA CELL MYELOMA
     Route: 048
     Dates: start: 20140115
  3. DEXAMETHASONE [Concomitant]
     Indication: PLASMA CELL MYELOMA
  4. ASPIRIN [Concomitant]
  5. VALTREX [Concomitant]

REACTIONS (2)
  - Urinary tract infection [Recovered/Resolved]
  - Bacteraemia [Recovered/Resolved]
